FAERS Safety Report 10728225 (Version 1)
Quarter: 2015Q1

REPORT INFORMATION
  Report Type: Spontaneous
  Country: TR (occurrence: TR)
  Receive Date: 20150121
  Receipt Date: 20150121
  Transmission Date: 20150721
  Serious: Yes (Death)
  Sender: FDA-Public Use
  Company Number: TR-ASTRAZENECA-2015SE05372

PATIENT
  Age: 82 Year
  Sex: Male

DRUGS (7)
  1. SEROQUEL [Suspect]
     Active Substance: QUETIAPINE FUMARATE
     Route: 048
     Dates: start: 2012, end: 2013
  2. SEROQUEL [Suspect]
     Active Substance: QUETIAPINE FUMARATE
     Route: 048
  3. REMERON [Concomitant]
     Active Substance: MIRTAZAPINE
  4. BIPROFENID [Concomitant]
     Active Substance: KETOPROFEN
  5. DELIX [Concomitant]
     Active Substance: RAMIPRIL
  6. ZALDIAR [Concomitant]
     Active Substance: ACETAMINOPHEN\TRAMADOL HYDROCHLORIDE
  7. AMOKLAVIN [Concomitant]

REACTIONS (1)
  - Respiratory distress [Fatal]
